FAERS Safety Report 7561607-6 (Version None)
Quarter: 2011Q2

REPORT INFORMATION
  Report Type: 
  Country: None (occurrence: None)
  Receive Date: 20110621
  Receipt Date: 20110606
  Transmission Date: 20111010
  Serious: Yes (Other)
  Sender: FDA-Public Use
  Company Number: US-WATSON-2011-08423

PATIENT
  Age: 18 Year
  Sex: Female

DRUGS (1)
  1. PREDNISONE [Suspect]
     Indication: TUBULOINTERSTITIAL NEPHRITIS
     Dosage: 60 MG, DAILY X 6 WEEKS

REACTIONS (2)
  - ABDOMINAL DISTENSION [None]
  - PAIN IN EXTREMITY [None]
